FAERS Safety Report 21594622 (Version 4)
Quarter: 2023Q1

REPORT INFORMATION
  Report Type: Report from Study
  Country: US (occurrence: US)
  Receive Date: 20221115
  Receipt Date: 20230131
  Transmission Date: 20230417
  Serious: Yes (Other)
  Sender: FDA-Public Use
  Company Number: US-ABBVIE-22K-163-4533310-00

PATIENT
  Sex: Female

DRUGS (5)
  1. HUMIRA [Suspect]
     Active Substance: ADALIMUMAB
     Indication: Rheumatoid arthritis
     Route: 058
  2. HUMIRA [Suspect]
     Active Substance: ADALIMUMAB
     Route: 058
  3. HUMIRA [Suspect]
     Active Substance: ADALIMUMAB
     Route: 058
  4. LEFLUNOMIDE [Concomitant]
     Active Substance: LEFLUNOMIDE
     Indication: Product used for unknown indication
  5. PFIZER-BIONTECH COVID-19 VACCINE [Concomitant]
     Active Substance: TOZINAMERAN
     Indication: COVID-19 immunisation
     Dosage: ONE IN ONCE FREQUENCY
     Route: 030

REACTIONS (35)
  - Cerebrovascular accident [Unknown]
  - Musculoskeletal stiffness [Unknown]
  - Device colour issue [Unknown]
  - Trigger finger [Not Recovered/Not Resolved]
  - Anxiety [Unknown]
  - Joint swelling [Unknown]
  - Grip strength decreased [Unknown]
  - Musculoskeletal stiffness [Unknown]
  - Fibromyalgia [Unknown]
  - Therapeutic product effect decreased [Unknown]
  - Arthralgia [Unknown]
  - Drug ineffective [Unknown]
  - Drug interaction [Unknown]
  - Diverticulitis [Unknown]
  - Alopecia [Unknown]
  - Dupuytren^s contracture [Unknown]
  - Hypertension [Unknown]
  - Meniere^s disease [Unknown]
  - Vertigo [Unknown]
  - Glucose tolerance impaired [Unknown]
  - Plantar fasciitis [Unknown]
  - Sinusitis [Unknown]
  - Fungal oesophagitis [Unknown]
  - Anaemia [Unknown]
  - Gastrooesophageal reflux disease [Unknown]
  - Nodule [Unknown]
  - Aneurysm [Unknown]
  - Pain in extremity [Unknown]
  - Hand deformity [Unknown]
  - Finger deformity [Unknown]
  - Rheumatoid arthritis [Not Recovered/Not Resolved]
  - Urinary tract infection [Unknown]
  - Bundle branch block left [Unknown]
  - Bundle branch block right [Unknown]
  - Arthralgia [Unknown]
